FAERS Safety Report 7991248 (Version 4)
Quarter: 2013Q2

REPORT INFORMATION
  Report Type: Spontaneous
  Country: JP (occurrence: JP)
  Receive Date: 20110615
  Receipt Date: 20130513
  Transmission Date: 20140414
  Serious: No
  Sender: FDA-Public Use
  Company Number: JP-ELI_LILLY_AND_COMPANY-JP201104003951

PATIENT
  Age: 83 Year
  Sex: Female

DRUGS (2)
  1. FORTEO [Suspect]
     Dosage: UNK
     Route: 058
     Dates: start: 20110331, end: 201104
  2. FORTEO [Suspect]
     Dosage: UNK
     Route: 058
     Dates: start: 20111122

REACTIONS (3)
  - Dizziness [Unknown]
  - Muscular weakness [Unknown]
  - Pain [Unknown]
